FAERS Safety Report 10449241 (Version 1)
Quarter: 2014Q3

REPORT INFORMATION
  Report Type: Spontaneous
  Country: CA (occurrence: None)
  Receive Date: 20140910
  Receipt Date: 20140910
  Transmission Date: 20150326
  Serious: Yes (Other)
  Sender: FDA-Public Use
  Company Number: KAD201408

PATIENT
  Age: 57 Year
  Sex: Male

DRUGS (3)
  1. RIBAVIRIN (RIBAVIRIN) [Suspect]
     Active Substance: RIBAVIRIN
     Indication: CHRONIC HEPATITIS C
  2. TELAPREVIR (TELAPREVIR) [Suspect]
     Active Substance: TELAPREVIR
     Indication: HEPATITIS C
  3. PEGYLATED INTERFERON ALPHA NOS [Suspect]
     Active Substance: PEGINTERFERON ALFA-2A OR PEGINTERFERON ALFA-2B
     Indication: CHRONIC HEPATITIS C

REACTIONS (3)
  - Oesophageal varices haemorrhage [None]
  - Antimitochondrial antibody positive [None]
  - Hepatitis C [None]
